FAERS Safety Report 9542031 (Version 1)
Quarter: 2013Q3

REPORT INFORMATION
  Report Type: Spontaneous
  Country: ES (occurrence: None)
  Receive Date: 20130918
  Receipt Date: 20130918
  Transmission Date: 20140515
  Serious: Yes (Hospitalization)
  Sender: FDA-Public Use
  Company Number: FK201304241

PATIENT
  Age: 40 Year
  Sex: Female

DRUGS (2)
  1. GEMCITABINE [Suspect]
     Indication: OVARIAN EPITHELIAL CANCER
  2. CISPLATIN (CISPLATIN) [Concomitant]

REACTIONS (2)
  - Polyarteritis nodosa [None]
  - Cutaneous vasculitis [None]
